FAERS Safety Report 7626089-4 (Version None)
Quarter: 2011Q3

REPORT INFORMATION
  Report Type: 
  Country: None (occurrence: None)
  Receive Date: 20110713
  Receipt Date: 20110627
  Transmission Date: 20111222
  Serious: Yes (Other)
  Sender: FDA-Public Use
  Company Number: AUR-APL-2011-03822

PATIENT
  Age: 84 Year
  Sex: Female

DRUGS (6)
  1. EFFEXOR XR [Suspect]
     Indication: PRODUCT USED FOR UNKNOWN INDICATION
  2. NEURONTIN [Concomitant]
  3. INSULIN [Suspect]
     Indication: PRODUCT USED FOR UNKNOWN INDICATION
  4. METFORMIN HCL [Suspect]
     Indication: PRODUCT USED FOR UNKNOWN INDICATION
  5. RISPERIDONE [Suspect]
     Indication: PRODUCT USED FOR UNKNOWN INDICATION
     Dosage: 1 MG (0.5 MG, 2 IN 1 D)
  6. TRAZODONE HCL [Concomitant]

REACTIONS (7)
  - CLOSTRIDIAL INFECTION [None]
  - DRUG PRESCRIBING ERROR [None]
  - KIDNEY INFECTION [None]
  - DIARRHOEA [None]
  - DELIRIUM [None]
  - DRUG ADMINISTRATION ERROR [None]
  - BLOOD GLUCOSE DECREASED [None]
